FAERS Safety Report 9164391 (Version 1)
Quarter: 2013Q1

REPORT INFORMATION
  Report Type: Spontaneous
  Country: DK (occurrence: None)
  Receive Date: 20130226
  Receipt Date: 20130226
  Transmission Date: 20140127
  Serious: Yes (Life-Threatening, Hospitalization, Other)
  Sender: FDA-Public Use
  Company Number: 2013MA001314

PATIENT
  Age: 60 Year
  Sex: Female

DRUGS (4)
  1. INDAPAMIDE (INDAPAMIDE) [Suspect]
     Indication: HYPERTENSION
     Route: 048
     Dates: start: 20120822, end: 20120905
  2. BISOPROLOL [Concomitant]
  3. RAMIPRIL [Concomitant]
  4. BENDROFLIMETHIAZIDE (SODIUM ABNORMAL NOS) [Concomitant]

REACTIONS (3)
  - Fall [None]
  - Confusional state [None]
  - Blood sodium decreased [None]
